FAERS Safety Report 8489385-7 (Version None)
Quarter: 2012Q3

REPORT INFORMATION
  Report Type: 
  Country: None (occurrence: None)
  Receive Date: 20120705
  Receipt Date: 20120626
  Transmission Date: 20120928
  Serious: Yes (Other)
  Sender: FDA-Public Use
  Company Number: US-ASTRAZENECA-2012SE28182

PATIENT
  Age: 61 Year
  Sex: Female
  Weight: 66 kg

DRUGS (11)
  1. ATIVAN [Concomitant]
     Route: 048
  2. ASPIRIN [Concomitant]
     Route: 048
  3. FISH OIL-OMEGA-3 FATTY ACIDS [Concomitant]
     Dosage: 1 GM DAILY
     Route: 048
  4. OVER THE COUNTER TYLENOL [Concomitant]
  5. ARIMIDEX [Suspect]
     Indication: BREAST CANCER
     Route: 048
  6. COQ10 [Concomitant]
     Route: 048
  7. ZOCOR [Suspect]
     Route: 048
  8. NSAID [Suspect]
     Route: 065
  9. MULTI-VITAMIN [Concomitant]
     Route: 048
  10. CALCIUM CARBONATE [Concomitant]
     Dosage: 600 TWO TIMES DAILY
     Route: 048
  11. GLUCOSAMINE [Concomitant]
     Route: 048

REACTIONS (8)
  - ARTHRITIS [None]
  - BONE PAIN [None]
  - ASPARTATE AMINOTRANSFERASE INCREASED [None]
  - LOWER LIMB FRACTURE [None]
  - ARTHRALGIA [None]
  - ALANINE AMINOTRANSFERASE INCREASED [None]
  - EXOSTOSIS [None]
  - PAIN IN EXTREMITY [None]
